FAERS Safety Report 6110162-6 (Version None)
Quarter: 2009Q1

REPORT INFORMATION
  Report Type: 
  Country: None (occurrence: None)
  Receive Date: 20090306
  Receipt Date: 20090220
  Transmission Date: 20090719
  Serious: Yes (Hospitalization)
  Sender: FDA-Public Use
  Company Number: 2009-191542-NL

PATIENT
  Age: 31 Year
  Sex: Female

DRUGS (1)
  1. CHORIONIC GONADTROPIN [Suspect]
     Indication: OVARIAN DISORDER
     Dosage: 10000 IU

REACTIONS (15)
  - ABDOMINAL DISTENSION [None]
  - ASCITES [None]
  - CEREBRAL INFARCTION [None]
  - FACIAL NERVE DISORDER [None]
  - GAZE PALSY [None]
  - HAEMORRHAGIC TRANSFORMATION STROKE [None]
  - HEMIPLEGIA [None]
  - NAUSEA [None]
  - OVARIAN ENLARGEMENT [None]
  - OVARIAN HYPERSTIMULATION SYNDROME [None]
  - POLYCYSTIC OVARIES [None]
  - PREGNANCY TEST POSITIVE [None]
  - REFUSAL OF TREATMENT BY PATIENT [None]
  - SOMNOLENCE [None]
  - VOMITING [None]
